FAERS Safety Report 6105408-4 (Version None)
Quarter: 2009Q1

REPORT INFORMATION
  Report Type: 
  Country: None (occurrence: None)
  Receive Date: 20090304
  Receipt Date: 20090304
  Transmission Date: 20090719
  Serious: Yes (Death)
  Sender: FDA-Public Use
  Company Number: None

PATIENT
  Sex: Female

DRUGS (14)
  1. REVLIMID [Suspect]
     Indication: MULTIPLE MYELOMA
     Dosage: 10MG DAILY 21D/28D ORAL
     Route: 048
     Dates: start: 20090108, end: 20090216
  2. DEXAMETHASONE 4MG TAB [Suspect]
     Indication: MULTIPLE MYELOMA
     Dosage: 40MG WEEKLY ORAL
     Route: 048
     Dates: start: 20090108, end: 20090216
  3. DECADRON [Concomitant]
  4. FUROSEMIDE [Concomitant]
  5. MEGESTROL ACETATE [Concomitant]
  6. MORPHINE [Concomitant]
  7. AMLODIPINE BESYLATE [Concomitant]
  8. K-TAB [Concomitant]
  9. METOCLOPRAMIDE HYDROCHLORIDE [Concomitant]
  10. HYROXYCHLOROQUINE [Concomitant]
  11. COZAAR [Concomitant]
  12. LOVASTATIN [Concomitant]
  13. ATENOLOL [Concomitant]
  14. OMEPRAZOLE [Concomitant]

REACTIONS (4)
  - GENERAL PHYSICAL HEALTH DETERIORATION [None]
  - ILL-DEFINED DISORDER [None]
  - OEDEMA PERIPHERAL [None]
  - RESPIRATORY DISTRESS [None]
